FAERS Safety Report 4385116-0 (Version None)
Quarter: 2004Q2

REPORT INFORMATION
  Report Type: 
  Country: None (occurrence: None)
  Receive Date: 20040624
  Receipt Date: 20040624
  Transmission Date: 20050107
  Serious: Yes (Other)
  Sender: FDA-Public Use
  Company Number: None

PATIENT
  Sex: Male

DRUGS (7)
  1. ARIPIPRAZOLE 10 MG [Suspect]
     Indication: PARKINSON'S DISEASE
     Dosage: 10 MG BID ORAL
     Route: 048
     Dates: start: 20040326, end: 20040331
  2. CARBIDOPA AND LEVODOPA [Concomitant]
  3. CEPHALEXIN [Concomitant]
  4. ENTACAPONE [Concomitant]
  5. RIMATADINE [Concomitant]
  6. RIVASTIGMINE [Concomitant]
  7. SERTRALINE HCL [Concomitant]

REACTIONS (1)
  - AGITATION [None]
